FAERS Safety Report 25368157 (Version 1)
Quarter: 2025Q2

REPORT INFORMATION
  Report Type: Spontaneous
  Country: US (occurrence: US)
  Receive Date: 20250528
  Receipt Date: 20250528
  Transmission Date: 20250717
  Serious: No
  Sender: BLUEPRINT MEDICINES
  Company Number: US-Blueprint Medicines Corporation-2025-AER-01113

PATIENT
  Age: 63 Year
  Sex: Female

DRUGS (2)
  1. AYVAKIT [Suspect]
     Active Substance: AVAPRITINIB
     Indication: Systemic mastocytosis
     Route: 065
  2. AYVAKIT [Suspect]
     Active Substance: AVAPRITINIB
     Route: 065

REACTIONS (4)
  - Periorbital swelling [Recovering/Resolving]
  - Tryptase increased [Recovering/Resolving]
  - Abdominal discomfort [Recovering/Resolving]
  - Polyuria [Unknown]

NARRATIVE: CASE EVENT DATE: 20250416
